FAERS Safety Report 8571773-1 (Version None)
Quarter: 2012Q3

REPORT INFORMATION
  Report Type: 
  Country: None (occurrence: None)
  Receive Date: 20120806
  Receipt Date: 20120724
  Transmission Date: 20120928
  Serious: No
  Sender: FDA-Public Use
  Company Number: US-ASTRAZENECA-2012SE52107

PATIENT
  Age: 57 Year
  Sex: Male
  Weight: 95.3 kg

DRUGS (5)
  1. LIPITOR [Concomitant]
     Indication: HYPERTENSION
  2. NEXIUM [Suspect]
     Route: 048
     Dates: start: 20100101
  3. LISINOPRIL [Concomitant]
     Indication: HYPERTENSION
  4. NEXIUM [Suspect]
     Indication: GASTROOESOPHAGEAL REFLUX DISEASE
     Route: 048
     Dates: start: 20020101
  5. ENBREL [Concomitant]
     Indication: PSORIASIS

REACTIONS (3)
  - GASTROOESOPHAGEAL REFLUX DISEASE [None]
  - PSORIASIS [None]
  - DRUG DOSE OMISSION [None]
